FAERS Safety Report 8845825 (Version 1)
Quarter: 2012Q4

REPORT INFORMATION
  Report Type: 
  Country: US (occurrence: US)
  Receive Date: 20121017
  Receipt Date: 20121017
  Transmission Date: 20130627
  Serious: No
  Sender: FDA-Public Use
  Company Number: US-BAYER-2012-108166

PATIENT
  Age: 59 Year
  Sex: Female
  Weight: 49.89 kg

DRUGS (2)
  1. ALEVE CAPLET/TABLET,MIDOL EXTENDED RELIEF CAPLET [Suspect]
     Indication: ANALGESIC THERAPY
     Dosage: 2 DF, PRN
     Dates: start: 1997
  2. SYNTHROID [Concomitant]
     Dosage: UNK

REACTIONS (2)
  - Dizziness [Recovered/Resolved]
  - Dizziness [Recovered/Resolved]
